FAERS Safety Report 15942744 (Version 4)
Quarter: 2019Q2

REPORT INFORMATION
  Report Type: Spontaneous
  Country: US (occurrence: US)
  Receive Date: 20190209
  Receipt Date: 20190523
  Transmission Date: 20190711
  Serious: Yes (Hospitalization, Other)
  Sender: FDA-Public Use
  Company Number: US-ASTRAZENECA-2018SF22217

PATIENT
  Age: 911 Month
  Sex: Male

DRUGS (28)
  1. SENNA [Concomitant]
     Active Substance: SENNA LEAF\SENNOSIDES\SENNOSIDES A AND B
  2. FLUTICASONE. [Concomitant]
     Active Substance: FLUTICASONE
  3. GABAPENTIN. [Concomitant]
     Active Substance: GABAPENTIN
  4. NEXIUM [Suspect]
     Active Substance: ESOMEPRAZOLE MAGNESIUM
     Route: 048
     Dates: start: 200402, end: 200403
  5. PRILOSEC [Suspect]
     Active Substance: OMEPRAZOLE MAGNESIUM
     Dosage: GENRIC
     Route: 048
     Dates: start: 201506, end: 201507
  6. PROTONIX [Suspect]
     Active Substance: PANTOPRAZOLE SODIUM
     Route: 065
     Dates: start: 201410, end: 201411
  7. CLOPIDOGREL [Concomitant]
     Active Substance: CLOPIDOGREL BISULFATE
  8. ONDANSETRON [Concomitant]
     Active Substance: ONDANSETRON
  9. INSULIN LISPRO [Concomitant]
     Active Substance: INSULIN LISPRO
  10. NITROGLYCERIN. [Concomitant]
     Active Substance: NITROGLYCERIN
  11. NEXIUM [Suspect]
     Active Substance: ESOMEPRAZOLE MAGNESIUM
     Route: 048
     Dates: start: 201310, end: 201401
  12. CANDESARTAN. [Concomitant]
     Active Substance: CANDESARTAN
  13. MORPHINE [Concomitant]
     Active Substance: MORPHINE
  14. DEXILANT [Suspect]
     Active Substance: DEXLANSOPRAZOLE
     Route: 065
     Dates: start: 201301, end: 201405
  15. ATORVASTATIN [Concomitant]
     Active Substance: ATORVASTATIN
  16. VERAPAMIL [Concomitant]
     Active Substance: VERAPAMIL HYDROCHLORIDE
  17. ALBUTEROL. [Concomitant]
     Active Substance: ALBUTEROL
  18. NEXIUM [Suspect]
     Active Substance: ESOMEPRAZOLE MAGNESIUM
     Route: 048
     Dates: start: 20130101, end: 20171231
  19. AMLODIPINE [Concomitant]
     Active Substance: AMLODIPINE BESYLATE
  20. ACETAMINOPHEN. [Concomitant]
     Active Substance: ACETAMINOPHEN
  21. LORAZEPAM. [Concomitant]
     Active Substance: LORAZEPAM
  22. PRILOSEC [Suspect]
     Active Substance: OMEPRAZOLE MAGNESIUM
     Route: 048
     Dates: start: 20130101, end: 20171231
  23. BISOPROLOL [Concomitant]
     Active Substance: BISOPROLOL
  24. DEXAMETHASONE. [Concomitant]
     Active Substance: DEXAMETHASONE
  25. HEPARIN [Concomitant]
     Active Substance: HEPARIN SODIUM
  26. ATORVASTATIN [Concomitant]
     Active Substance: ATORVASTATIN
  27. FUROSEMIDE. [Concomitant]
     Active Substance: FUROSEMIDE
  28. HYDROCHLOROTHIAZIDE. [Concomitant]
     Active Substance: HYDROCHLOROTHIAZIDE

REACTIONS (4)
  - Renal injury [Unknown]
  - Acute kidney injury [Not Recovered/Not Resolved]
  - Chronic kidney disease [Unknown]
  - Renal failure [Unknown]

NARRATIVE: CASE EVENT DATE: 201606
